FAERS Safety Report 6447055-0 (Version None)
Quarter: 2009Q4

REPORT INFORMATION
  Report Type: 
  Country: None (occurrence: None)
  Receive Date: 20091119
  Receipt Date: 20091111
  Transmission Date: 20100525
  Serious: Yes (Death)
  Sender: FDA-Public Use
  Company Number: GXKR2009UY12402

PATIENT
  Age: 39 Year
  Sex: Female

DRUGS (4)
  1. MYCOPHENOLATE MOFETIL (NGX) [Suspect]
     Indication: LUPUS NEPHRITIS
     Dosage: 1 G, BID
     Route: 065
  2. PREDNISONE [Concomitant]
     Indication: SYSTEMIC LUPUS ERYTHEMATOSUS
  3. HYDROXYCHLOROQUINE SULFATE [Concomitant]
     Indication: SYSTEMIC LUPUS ERYTHEMATOSUS
  4. AZATHIOPRINE [Concomitant]
     Indication: SYSTEMIC LUPUS ERYTHEMATOSUS

REACTIONS (8)
  - ABDOMINAL PAIN [None]
  - DECREASED APPETITE [None]
  - GASTROINTESTINAL SOUNDS ABNORMAL [None]
  - MULTI-ORGAN FAILURE [None]
  - PANCREATIC PSEUDOCYST [None]
  - PANCREATITIS ACUTE [None]
  - SHOCK [None]
  - VOMITING [None]
